FAERS Safety Report 10038452 (Version 1)
Quarter: 2014Q1

REPORT INFORMATION
  Report Type: Spontaneous
  Country: CA (occurrence: CA)
  Receive Date: 20140326
  Receipt Date: 20140326
  Transmission Date: 20141002
  Serious: Yes (Disabling, Other)
  Sender: FDA-Public Use
  Company Number: CA-BAYER-2014-043681

PATIENT
  Age: 73 Year
  Sex: Female
  Weight: 58.96 kg

DRUGS (5)
  1. AVELOX [Suspect]
     Dosage: 400 MG, QD
     Route: 048
  2. ADVAIR [Concomitant]
  3. PREDNISONE [Concomitant]
  4. SALBUTAMOL [Concomitant]
  5. SINGULAIR [Concomitant]

REACTIONS (8)
  - Glossodynia [Recovering/Resolving]
  - Joint swelling [Recovering/Resolving]
  - Eyelid disorder [Recovering/Resolving]
  - Gingival pain [Recovering/Resolving]
  - Swelling [Recovering/Resolving]
  - Ocular hyperaemia [Recovering/Resolving]
  - Rash [Recovering/Resolving]
  - Skin exfoliation [Recovering/Resolving]
